FAERS Safety Report 4399385-4 (Version None)
Quarter: 2004Q2

REPORT INFORMATION
  Report Type: 
  Country: None (occurrence: None)
  Receive Date: 20040607
  Receipt Date: 20040316
  Transmission Date: 20050107
  Serious: No
  Sender: FDA-Public Use
  Company Number: US-SHR-04-022742

PATIENT
  Age: 53 Year
  Sex: Male

DRUGS (3)
  1. CAMPATH [Suspect]
     Indication: B-CELL SMALL LYMPHOCYTIC LYMPHOMA
     Dosage: 3/10/30 MG, INTRAVENOUS
     Route: 042
     Dates: start: 20040223, end: 20040308
  2. TYLENOL /USA/ [Concomitant]
  3. BENADRYL (AMMONIUM CHLORIDE, DIPHENHYDRAMINE HYDROCHLORIDE, MENTHOL) [Concomitant]

REACTIONS (1)
  - BLOOD BILIRUBIN INCREASED [None]
